FAERS Safety Report 13996236 (Version 2)
Quarter: 2017Q4

REPORT INFORMATION
  Report Type: Spontaneous
  Country: US (occurrence: US)
  Receive Date: 20170921
  Receipt Date: 20171114
  Transmission Date: 20180321
  Serious: Yes (Other)
  Sender: FDA-Public Use
  Company Number: US-ACS-000779

PATIENT
  Age: 51 Year
  Sex: Female

DRUGS (1)
  1. MEROPENEM. [Suspect]
     Active Substance: MEROPENEM
     Indication: ARTHRITIS BACTERIAL
     Route: 042

REACTIONS (2)
  - Pulmonary eosinophilia [Recovered/Resolved]
  - Rash [Recovered/Resolved]
